FAERS Safety Report 7237341-9 (Version None)
Quarter: 2011Q1

REPORT INFORMATION
  Report Type: 
  Country: None (occurrence: None)
  Receive Date: 20110121
  Receipt Date: 20091202
  Transmission Date: 20110831
  Serious: No
  Sender: FDA-Public Use
  Company Number: A0832880A

PATIENT
  Age: 45 Year
  Sex: Female

DRUGS (6)
  1. ZITHROMAX [Concomitant]
  2. MEPRON [Suspect]
     Dosage: 1TSP TWICE PER DAY
     Route: 048
     Dates: start: 20091017
  3. ROCEPHIN [Concomitant]
     Route: 042
  4. DIFLUCAN [Concomitant]
  5. REMERON [Concomitant]
  6. KLONOPIN [Concomitant]

REACTIONS (2)
  - HEART RATE IRREGULAR [None]
  - HEART RATE INCREASED [None]
